FAERS Safety Report 11999037 (Version 1)
Quarter: 2016Q1

REPORT INFORMATION
  Report Type: Spontaneous
  Country: US (occurrence: None)
  Receive Date: 20160202
  Receipt Date: 20160202
  Transmission Date: 20160526
  Serious: No
  Sender: FDA-Public Use
  Company Number: None

PATIENT
  Age: 75 Year
  Sex: Female
  Weight: 68.04 kg

DRUGS (5)
  1. CEFEPIME [Concomitant]
     Active Substance: CEFEPIME HYDROCHLORIDE
  2. CEFEPIM 2 GM SAGENT [Suspect]
     Active Substance: CEFEPIME HYDROCHLORIDE
     Indication: LIMB PROSTHESIS USER
     Route: 042
     Dates: start: 20160129, end: 20160131
  3. VANCOMYCIN 1 GM MYLAN [Suspect]
     Active Substance: VANCOMYCIN
  4. CEFEPIM 2 GM SAGENT [Suspect]
     Active Substance: CEFEPIME HYDROCHLORIDE
     Indication: DEVICE RELATED INFECTION
     Route: 042
     Dates: start: 20160129, end: 20160131
  5. VANCOMYCIN [Concomitant]
     Active Substance: VANCOMYCIN

REACTIONS (3)
  - Dysphagia [None]
  - Ocular hyperaemia [None]
  - Pruritus [None]

NARRATIVE: CASE EVENT DATE: 20160201
